FAERS Safety Report 5302398-9 (Version None)
Quarter: 2007Q1

REPORT INFORMATION
  Report Type: 
  Country: None (occurrence: None)
  Receive Date: 20070201
  Receipt Date: 20061128
  Transmission Date: 20070707
  Serious: No
  Sender: FDA-Public Use
  Company Number: 2006PV025961

PATIENT
  Age: 61 Year
  Sex: Female
  Weight: 108.8633 kg

DRUGS (5)
  1. BYETTA [Suspect]
     Indication: DIABETES MELLITUS NON-INSULIN-DEPENDENT
     Dosage: 5 MCG; BID; SC
     Route: 058
     Dates: start: 20060601
  2. AMARYL [Concomitant]
  3. DIOVAN [Concomitant]
  4. ASPIRIN [Concomitant]
  5. ALLERGY SHOTS [Concomitant]

REACTIONS (4)
  - BACK PAIN [None]
  - BLOOD CHOLESTEROL DECREASED [None]
  - MYALGIA [None]
  - PAIN IN JAW [None]
